FAERS Safety Report 6792529-6 (Version None)
Quarter: 2010Q2

REPORT INFORMATION
  Report Type: 
  Country: None (occurrence: None)
  Receive Date: 20100624
  Receipt Date: 20080820
  Transmission Date: 20101027
  Serious: No
  Sender: FDA-Public Use
  Company Number: US-PFIZER INC-2008070255

PATIENT
  Sex: Female
  Weight: 70.454 kg

DRUGS (1)
  1. AROMASIN [Suspect]
     Indication: BREAST CANCER
     Dates: start: 20080701, end: 20080820

REACTIONS (3)
  - ARTHRALGIA [None]
  - FATIGUE [None]
  - INSOMNIA [None]
